FAERS Safety Report 12759126 (Version 8)
Quarter: 2017Q2

REPORT INFORMATION
  Report Type: Report from Study
  Country: FR (occurrence: FR)
  Receive Date: 20160919
  Receipt Date: 20170530
  Transmission Date: 20170830
  Serious: Yes (Hospitalization)
  Sender: FDA-Public Use
  Company Number: FR-ROCHE-1827804

PATIENT
  Age: 42 Year
  Sex: Female
  Weight: 70 kg

DRUGS (14)
  1. 5-FLUOROURACIL [Suspect]
     Active Substance: FLUOROURACIL
     Indication: HER-2 POSITIVE BREAST CANCER
     Dosage: MOST RECENT DOSE OF 900 MG WAS ADMINISTERED ON 24/JUL/2015
     Route: 042
     Dates: start: 20150522, end: 20150724
  2. LEVOTHYROX [Concomitant]
     Active Substance: LEVOTHYROXINE
     Indication: AUTOIMMUNE THYROIDITIS
     Route: 048
  3. AERIUS [Concomitant]
     Active Substance: DESLORATADINE
     Indication: SEASONAL ALLERGY
     Dosage: PRN (AS NEEDED)
     Route: 048
  4. AERIUS [Concomitant]
     Active Substance: DESLORATADINE
     Indication: ALLERGY TO ANIMAL
  5. SERELYS [Concomitant]
     Indication: HOT FLUSH
     Route: 048
     Dates: start: 20160607
  6. TRASTUZUMAB [Suspect]
     Active Substance: TRASTUZUMAB
     Dosage: MOST RECENT DOSE OF 426 MG WAS ADMINISTERED ON 09/AUG/2016
     Route: 042
     Dates: start: 201509
  7. PERTUZUMAB [Suspect]
     Active Substance: PERTUZUMAB
     Dosage: MOST RECENT DOSE OF 420 MG WAS ADMINISTERED ON 09/AUG/2016
     Route: 042
     Dates: start: 201509
  8. TRASTUZUMAB [Suspect]
     Active Substance: TRASTUZUMAB
     Indication: HER-2 POSITIVE BREAST CANCER
     Route: 042
     Dates: start: 20150814
  9. DOCETAXEL. [Suspect]
     Active Substance: DOCETAXEL
     Indication: HER-2 POSITIVE BREAST CANCER
     Dosage: 75 MG/M2 FIRST DOSE?MOST RECENT DOSE OF 180 MG WAS ADMINISTERED ON 16/OCT/2015
     Route: 042
     Dates: start: 20150814, end: 20151016
  10. TAMOXIFENE [Concomitant]
     Active Substance: TAMOXIFEN
     Indication: BREAST CANCER
     Route: 048
     Dates: start: 20160203
  11. EPIRUBICIN [Suspect]
     Active Substance: EPIRUBICIN
     Indication: HER-2 POSITIVE BREAST CANCER
     Dosage: MOST RECENT DOSE OF 180 MG WAS ADMINISTERED ON 24/JUL/2015
     Route: 042
     Dates: start: 20150522, end: 20150724
  12. CYCLOPHOSPHAMIDE. [Suspect]
     Active Substance: CYCLOPHOSPHAMIDE
     Indication: HER-2 POSITIVE BREAST CANCER
     Dosage: MOST RECENT DOSE OF 1083 MG  WAS ADMINISTERED ON 24/JUL/2015
     Route: 042
     Dates: start: 20150522, end: 20150724
  13. AERIUS [Concomitant]
     Active Substance: DESLORATADINE
     Indication: MITE ALLERGY
  14. PERTUZUMAB [Suspect]
     Active Substance: PERTUZUMAB
     Indication: HER-2 POSITIVE BREAST CANCER
     Route: 042
     Dates: start: 20150814

REACTIONS (1)
  - Atrial thrombosis [Recovered/Resolved]

NARRATIVE: CASE EVENT DATE: 20160905
